FAERS Safety Report 8708975 (Version 2)
Quarter: 2012Q4

REPORT INFORMATION
  Report Type: 
  Country: DZ (occurrence: DZ)
  Receive Date: 20120806
  Receipt Date: 20120905
  Transmission Date: 20130627
  Serious: Yes (Death, Other)
  Sender: FDA-Public Use
  Company Number: DZ-PFIZER INC-2012186258

PATIENT
  Age: 84 Year
  Sex: Female

DRUGS (3)
  1. LYRICA [Suspect]
     Indication: OSTEOARTHRITIS
     Dosage: 50 mg, 1x/day
     Dates: start: 20120714, end: 20120718
  2. SINTROM [Concomitant]
  3. CORDARONE [Concomitant]

REACTIONS (7)
  - Cardiac disorder [Fatal]
  - Somnolence [Unknown]
  - Balance disorder [Unknown]
  - Tremor [Unknown]
  - Insomnia [Unknown]
  - Irritability [Unknown]
  - Hypotension [Unknown]
